FAERS Safety Report 6304763-X (Version None)
Quarter: 2009Q3

REPORT INFORMATION
  Report Type: 
  Country: None (occurrence: None)
  Receive Date: 20090811
  Receipt Date: 20090714
  Transmission Date: 20100115
  Serious: Yes (Life-Threatening, Hospitalization, Other)
  Sender: FDA-Public Use
  Company Number: B0588168A

PATIENT
  Sex: Female
  Weight: 49 kg

DRUGS (6)
  1. PAXIL [Suspect]
     Indication: DEPRESSION
     Dosage: 10MG PER DAY
     Route: 048
     Dates: start: 20090528, end: 20090610
  2. SERTRALINE HCL [Suspect]
     Indication: DEPRESSION
     Route: 048
     Dates: start: 20090616, end: 20090618
  3. LENDORMIN [Concomitant]
  4. ZYPREXA [Concomitant]
  5. BROTIZOLAM [Concomitant]
  6. SEPAZON [Concomitant]

REACTIONS (5)
  - ANXIETY [None]
  - DELUSION [None]
  - IMPULSIVE BEHAVIOUR [None]
  - PSYCHOMOTOR HYPERACTIVITY [None]
  - SELF INJURIOUS BEHAVIOUR [None]
